FAERS Safety Report 9246747 (Version 1)
Quarter: 2013Q2

REPORT INFORMATION
  Report Type: Spontaneous
  Country: US (occurrence: US)
  Receive Date: 20130422
  Receipt Date: 20130422
  Transmission Date: 20140414
  Serious: Yes (Life-Threatening)
  Sender: FDA-Public Use
  Company Number: CHPA2013US006503

PATIENT
  Sex: Female

DRUGS (2)
  1. PREVACID 24HR 15MG [Suspect]
     Indication: GASTROOESOPHAGEAL REFLUX DISEASE
     Dosage: 30 MG QD
     Route: 048
  2. PREVACID 24HR 15MG [Suspect]
     Indication: HIATUS HERNIA

REACTIONS (4)
  - Feeling abnormal [Unknown]
  - Prescribed overdose [Unknown]
  - Therapeutic response unexpected [Unknown]
  - Off label use [Unknown]
